FAERS Safety Report 20628457 (Version 7)
Quarter: 2022Q4

REPORT INFORMATION
  Report Type: Spontaneous
  Country: US (occurrence: US)
  Receive Date: 20220323
  Receipt Date: 20221112
  Transmission Date: 20230112
  Serious: No
  Sender: FDA-Public Use
  Company Number: US-DSJP-DSU-2022-110162AA

PATIENT
  Sex: Male

DRUGS (2)
  1. TURALIO [Suspect]
     Active Substance: PEXIDARTINIB HYDROCHLORIDE
     Indication: Giant cell tumour of tendon sheath
     Dosage: 400 MG, BID
     Route: 048
     Dates: start: 20220310
  2. TURALIO [Suspect]
     Active Substance: PEXIDARTINIB HYDROCHLORIDE
     Dosage: 1 DF, BID
     Route: 048
     Dates: start: 20220327, end: 20220426

REACTIONS (7)
  - Peripheral swelling [Recovered/Resolved]
  - Chest discomfort [Recovered/Resolved]
  - Peripheral swelling [Unknown]
  - Product use issue [Unknown]
  - Oedema [Unknown]
  - Drug intolerance [Unknown]
  - Insurance issue [Unknown]

NARRATIVE: CASE EVENT DATE: 20220101
